FAERS Safety Report 16761075 (Version 1)
Quarter: 2019Q3

REPORT INFORMATION
  Report Type: Spontaneous
  Country: US (occurrence: US)
  Receive Date: 20190830
  Receipt Date: 20190830
  Transmission Date: 20191005
  Serious: No
  Sender: FDA-Public Use
  Company Number: US-ANIPHARMA-2018-US-013852

PATIENT
  Age: 60 Year
  Sex: Female
  Weight: 65.77 kg

DRUGS (6)
  1. VITAMIN D3 [Concomitant]
     Active Substance: CHOLECALCIFEROL
  2. ARMOUR THYROID [Concomitant]
     Active Substance: THYROID, PORCINE
  3. ARIMIDEX [Suspect]
     Active Substance: ANASTROZOLE
     Indication: PRODUCT USED FOR UNKNOWN INDICATION
     Dosage: 1 TAB PO DAILY
     Route: 048
     Dates: start: 20180810, end: 20180813
  4. ATORVASTATIN [Concomitant]
     Active Substance: ATORVASTATIN
  5. CYTOMEL [Concomitant]
     Active Substance: LIOTHYRONINE SODIUM
  6. UNSPECIFIED CALCIUM [Concomitant]

REACTIONS (1)
  - Pain in extremity [Recovered/Resolved]

NARRATIVE: CASE EVENT DATE: 20180810
